FAERS Safety Report 11173378 (Version 12)
Quarter: 2019Q3

REPORT INFORMATION
  Report Type: Spontaneous
  Country: CA (occurrence: CA)
  Receive Date: 20150608
  Receipt Date: 20190902
  Transmission Date: 20191004
  Serious: Yes (Other)
  Sender: FDA-Public Use
  Company Number: CA-ROCHE-1586722

PATIENT
  Age: 21 Year
  Sex: Male
  Weight: 68 kg

DRUGS (8)
  1. ACTEMRA [Suspect]
     Active Substance: TOCILIZUMAB
     Indication: STILL^S DISEASE
     Route: 042
     Dates: start: 20150521
  2. KINERET [Concomitant]
     Active Substance: ANAKINRA
  3. ALENDRONATE [Concomitant]
     Active Substance: ALENDRONATE SODIUM
  4. PANTOLOC [PANTOPRAZOLE] [Concomitant]
     Active Substance: PANTOPRAZOLE SODIUM
  5. CORTISONE [Concomitant]
     Active Substance: CORTISONE
  6. ACTEMRA [Suspect]
     Active Substance: TOCILIZUMAB
     Dosage: INFUSION#47
     Route: 042
     Dates: start: 20170817
  7. METHOTREXATE. [Concomitant]
     Active Substance: METHOTREXATE
  8. FOLIC ACID. [Concomitant]
     Active Substance: FOLIC ACID

REACTIONS (15)
  - Joint swelling [Unknown]
  - Skin exfoliation [Unknown]
  - Wound complication [Not Recovered/Not Resolved]
  - Pruritus [Unknown]
  - Appendix disorder [Unknown]
  - Rash [Unknown]
  - Muscular weakness [Unknown]
  - Migraine [Recovering/Resolving]
  - Disturbance in attention [Unknown]
  - Musculoskeletal stiffness [Unknown]
  - Viral infection [Recovered/Resolved]
  - Infusion related reaction [Recovered/Resolved]
  - Obsessive-compulsive disorder [Unknown]
  - Pain [Unknown]
  - Pain in extremity [Not Recovered/Not Resolved]

NARRATIVE: CASE EVENT DATE: 20150603
